FAERS Safety Report 5642528-2 (Version None)
Quarter: 2008Q1

REPORT INFORMATION
  Report Type: 
  Country: None (occurrence: None)
  Receive Date: 20080227
  Receipt Date: 20080227
  Transmission Date: 20080703
  Serious: Yes (Hospitalization)
  Sender: FDA-Public Use
  Company Number: None

PATIENT
  Sex: Female
  Weight: 61.6892 kg

DRUGS (2)
  1. INSULIN PUMP [Suspect]
     Indication: DIABETES MELLITUS
     Dosage: INSULIN PUMP PRIOR TO ADMISSION
  2. ASPIRIN [Concomitant]

REACTIONS (3)
  - BLOOD GLUCOSE DECREASED [None]
  - CONFUSIONAL STATE [None]
  - TREATMENT NONCOMPLIANCE [None]
